FAERS Safety Report 7354825-3 (Version None)
Quarter: 2011Q1

REPORT INFORMATION
  Report Type: 
  Country: None (occurrence: None)
  Receive Date: 20110316
  Receipt Date: 20110304
  Transmission Date: 20110831
  Serious: Yes (Death, Hospitalization)
  Sender: FDA-Public Use
  Company Number: US-BRISTOL-MYERS SQUIBB COMPANY-15575061

PATIENT
  Age: 58 Year
  Sex: Female

DRUGS (3)
  1. WARFARIN SODIUM [Suspect]
     Indication: DEEP VEIN THROMBOSIS
     Dosage: SINGLE DOSE
  2. ARGATROBAN [Suspect]
     Dosage: INTERRUPTED AND REINITIATED AT 0.1MICROG/KG/MIN INCREASED TO 0.2MICROG/KG/MIN
  3. FONDAPARINUX SODIUM [Suspect]
     Indication: ISCHAEMIA
     Dosage: 1DF= 10MG SQ

REACTIONS (4)
  - GANGRENE [None]
  - THROMBOPHLEBITIS SUPERFICIAL [None]
  - PULMONARY HAEMORRHAGE [None]
  - DEEP VEIN THROMBOSIS [None]
